FAERS Safety Report 17933582 (Version 1)
Quarter: 2020Q2

REPORT INFORMATION
  Report Type: Spontaneous
  Country: CA (occurrence: CA)
  Receive Date: 20200623
  Receipt Date: 20200623
  Transmission Date: 20200714
  Serious: Yes (Other)
  Sender: FDA-Public Use
  Company Number: CA-KALEO, INC.-2020KL000059

PATIENT

DRUGS (1)
  1. ALLERJECT [Suspect]
     Active Substance: EPINEPHRINE
     Indication: ANAPHYLACTIC REACTION

REACTIONS (4)
  - Product complaint [Recovered/Resolved]
  - Condition aggravated [Recovered/Resolved]
  - Therapeutic product effect decreased [Recovered/Resolved]
  - Drug ineffective [Recovered/Resolved]
